FAERS Safety Report 4439596-2 (Version None)
Quarter: 2004Q3

REPORT INFORMATION
  Report Type: 
  Country: None (occurrence: None)
  Receive Date: 20040902
  Receipt Date: 20040629
  Transmission Date: 20050211
  Serious: Yes (Death)
  Sender: FDA-Public Use
  Company Number: 200412236JP

PATIENT
  Age: 71 Year
  Sex: Male

DRUGS (4)
  1. TAXOTERE [Suspect]
     Indication: OESOPHAGEAL CARCINOMA RECURRENT
     Route: 041
     Dates: start: 20040108, end: 20040108
  2. KYTRIL [Concomitant]
     Indication: PROPHYLAXIS OF NAUSEA AND VOMITING
     Route: 041
     Dates: start: 20040108, end: 20040108
  3. CHLOR-TRIMETON [Concomitant]
     Indication: HYPERSENSITIVITY
     Route: 041
     Dates: start: 20040108, end: 20040108
  4. CHLOR-TRIMETON [Concomitant]
     Indication: PROPHYLAXIS
     Route: 041
     Dates: start: 20040108, end: 20040108

REACTIONS (11)
  - ANOREXIA [None]
  - ASPIRATION [None]
  - BLOOD UREA INCREASED [None]
  - DRUG INEFFECTIVE [None]
  - FATIGUE [None]
  - HAEMOGLOBIN DECREASED [None]
  - HYPOKINESIA [None]
  - LABORATORY TEST ABNORMAL [None]
  - LOBAR PNEUMONIA [None]
  - NEUTROPHIL COUNT DECREASED [None]
  - RED BLOOD CELL COUNT DECREASED [None]
